FAERS Safety Report 9751463 (Version 1)
Quarter: 2013Q4

REPORT INFORMATION
  Report Type: Spontaneous
  Country: US (occurrence: US)
  Receive Date: 20131212
  Receipt Date: 20131212
  Transmission Date: 20140711
  Serious: Yes (Hospitalization)
  Sender: FDA-Public Use
  Company Number: PHHY2013US142532

PATIENT
  Age: 77 Year
  Sex: Male

DRUGS (4)
  1. ALENDRONIC ACID [Suspect]
     Indication: BONE DENSITY DECREASED
     Dosage: 70 MG, QW
  2. ALENDRONIC ACID [Suspect]
     Dosage: 70 MG, QD
  3. OMEPRAZOLE [Suspect]
  4. ACETYLSALICYLIC ACID [Suspect]

REACTIONS (9)
  - Laryngeal ulceration [Recovered/Resolved]
  - Haemoptysis [Recovered/Resolved]
  - Cough [Recovered/Resolved]
  - Dysphagia [Recovered/Resolved]
  - Laryngeal haemorrhage [Recovered/Resolved]
  - Mucous membrane disorder [Recovered/Resolved]
  - Oral mucosal erythema [Recovered/Resolved]
  - Accidental overdose [Recovered/Resolved]
  - Wrong drug administered [Recovered/Resolved]
